FAERS Safety Report 15395691 (Version 1)
Quarter: 2018Q3

REPORT INFORMATION
  Report Type: Spontaneous
  Country: BR (occurrence: BR)
  Receive Date: 20180918
  Receipt Date: 20180918
  Transmission Date: 20181010
  Serious: Yes (Death)
  Sender: FDA-Public Use
  Company Number: BR-JNJFOC-20180907795

PATIENT
  Age: 65 Year
  Sex: Female

DRUGS (6)
  1. DIPYRONE [Suspect]
     Active Substance: DIPYRONE
     Indication: ARTHRITIS
     Route: 065
  2. PHENERGAN [Suspect]
     Active Substance: PROMETHAZINE HYDROCHLORIDE
     Indication: ARTHRITIS
     Route: 065
  3. DECADRON [Suspect]
     Active Substance: DEXAMETHASONE
     Indication: ARTHRITIS
     Route: 065
  4. TYLENOL [Suspect]
     Active Substance: ACETAMINOPHEN
     Route: 065
  5. TYLENOL [Suspect]
     Active Substance: ACETAMINOPHEN
     Indication: PAIN
     Route: 065
  6. DIPYRONE [Suspect]
     Active Substance: DIPYRONE
     Indication: PAIN
     Route: 065

REACTIONS (1)
  - Cardiac arrest [Fatal]

NARRATIVE: CASE EVENT DATE: 20180820
